FAERS Safety Report 10407055 (Version 1)
Quarter: 2014Q3

REPORT INFORMATION
  Report Type: Spontaneous
  Country: US (occurrence: None)
  Receive Date: 20140822
  Receipt Date: 20140822
  Transmission Date: 20150326
  Serious: No
  Sender: FDA-Public Use
  Company Number: None

PATIENT
  Age: 45 Year
  Sex: Female
  Weight: 99.79 kg

DRUGS (3)
  1. ACETAMINOPHEN. [Suspect]
     Active Substance: ACETAMINOPHEN
     Indication: PAIN
     Dosage: 2 PILLS  TWICE DAILY TAKEN BY MOUTH
     Route: 048
     Dates: start: 20140817, end: 20140820
  2. ACETAMINOPHEN. [Suspect]
     Active Substance: ACETAMINOPHEN
     Indication: PYREXIA
     Dosage: 2 PILLS  TWICE DAILY TAKEN BY MOUTH
     Route: 048
     Dates: start: 20140817, end: 20140820
  3. ACETAMINOPHEN. [Suspect]
     Active Substance: ACETAMINOPHEN
     Indication: INFLUENZA LIKE ILLNESS
     Dosage: 2 PILLS  TWICE DAILY TAKEN BY MOUTH
     Route: 048
     Dates: start: 20140817, end: 20140820

REACTIONS (2)
  - Hot flush [None]
  - Skin burning sensation [None]

NARRATIVE: CASE EVENT DATE: 20140820
